FAERS Safety Report 12769450 (Version 3)
Quarter: 2017Q2

REPORT INFORMATION
  Report Type: Spontaneous
  Country: US (occurrence: US)
  Receive Date: 20160921
  Receipt Date: 20170409
  Transmission Date: 20170830
  Serious: No
  Sender: FDA-Public Use
  Company Number: US-TEVA-690937USA

PATIENT
  Age: 71 Year
  Sex: Male
  Weight: 104.95 kg

DRUGS (4)
  1. GRANIX [Suspect]
     Active Substance: TBO-FILGRASTIM
     Indication: NEUTROPENIA
     Route: 042
     Dates: start: 20160901, end: 20160910
  2. CARBOPLATIN. [Suspect]
     Active Substance: CARBOPLATIN
     Route: 065
  3. ETOPOSIDE. [Suspect]
     Active Substance: ETOPOSIDE
     Route: 065
  4. GRANIX [Suspect]
     Active Substance: TBO-FILGRASTIM
     Dates: start: 20160922, end: 20161002

REACTIONS (1)
  - Malaise [Not Recovered/Not Resolved]

NARRATIVE: CASE EVENT DATE: 20160901
